FAERS Safety Report 5473955-4 (Version None)
Quarter: 2007Q4

REPORT INFORMATION
  Report Type: 
  Country: None (occurrence: None)
  Receive Date: 20071001
  Receipt Date: 20070921
  Transmission Date: 20080405
  Serious: Yes (Hospitalization, Other)
  Sender: FDA-Public Use
  Company Number: CH-PFIZER INC-2007079887

PATIENT
  Age: 84 Year
  Sex: Female

DRUGS (1)
  1. FRAGMIN [Suspect]
     Route: 058

REACTIONS (1)
  - DEEP VEIN THROMBOSIS [None]
